FAERS Safety Report 14067083 (Version 1)
Quarter: 2017Q4

REPORT INFORMATION
  Report Type: Spontaneous
  Country: US (occurrence: US)
  Receive Date: 20171007
  Receipt Date: 20171007
  Transmission Date: 20180321
  Serious: Yes (Life-Threatening, Hospitalization, Disabling, Other)
  Sender: FDA-Public Use
  Company Number: None

PATIENT
  Age: 38 Year
  Sex: Female
  Weight: 93.6 kg

DRUGS (5)
  1. PRENATAL VITAMINS [Concomitant]
     Active Substance: VITAMINS
  2. LORAZAPAM [Concomitant]
     Active Substance: LORAZEPAM
  3. LEVETIRACETAM EXTENDED-RELEASE TABLETS USP [Suspect]
     Active Substance: LEVETIRACETAM
     Indication: EPILEPSY
     Dosage: ?          QUANTITY:24 TABLET(S);?
     Route: 048
     Dates: start: 20170929, end: 20170929
  4. DEPAKOTE [Concomitant]
     Active Substance: DIVALPROEX SODIUM
  5. METFORMIN [Concomitant]
     Active Substance: METFORMIN HYDROCHLORIDE

REACTIONS (3)
  - Heart rate increased [None]
  - Injury [None]
  - Fall [None]

NARRATIVE: CASE EVENT DATE: 20170929
